FAERS Safety Report 8515192-2 (Version None)
Quarter: 2012Q3

REPORT INFORMATION
  Report Type: 
  Country: None (occurrence: None)
  Receive Date: 20120717
  Receipt Date: 20120709
  Transmission Date: 20120928
  Serious: Yes (Other)
  Sender: FDA-Public Use
  Company Number: JP-GLAXOSMITHKLINE-B0811364A

PATIENT
  Sex: Female

DRUGS (2)
  1. FLUVOXAMINE MALEATE [Concomitant]
     Dosage: 200MG PER DAY
     Route: 048
     Dates: start: 20110609
  2. PAXIL [Suspect]
     Indication: DEPRESSION
     Dosage: 20MG PER DAY
     Route: 048
     Dates: start: 20101115, end: 20120626

REACTIONS (4)
  - CHEST PAIN [None]
  - PALPITATIONS [None]
  - ELECTROCARDIOGRAM QT PROLONGED [None]
  - SINUS ARRHYTHMIA [None]
